FAERS Safety Report 6042239-8 (Version None)
Quarter: 2009Q1

REPORT INFORMATION
  Report Type: 
  Country: None (occurrence: None)
  Receive Date: 20090116
  Receipt Date: 20090106
  Transmission Date: 20090719
  Serious: Yes (Hospitalization)
  Sender: FDA-Public Use
  Company Number: GB-BAXTER-2009BH000576

PATIENT
  Age: 42 Year
  Sex: Male

DRUGS (8)
  1. METRONIDAZOLE [Suspect]
     Indication: HELICOBACTER INFECTION
     Dates: start: 20040701, end: 20040701
  2. METRONIDAZOLE [Suspect]
     Dates: start: 20040701, end: 20040701
  3. METRONIDAZOLE [Suspect]
     Dates: start: 19960101
  4. METRONIDAZOLE [Suspect]
     Dates: start: 20041001, end: 20041001
  5. LANSOPRAZOLE [Concomitant]
     Indication: DRUG USE FOR UNKNOWN INDICATION
  6. AMOXICILLIN [Concomitant]
     Indication: DRUG USE FOR UNKNOWN INDICATION
  7. PROTON PUMP INHIBITOR [Concomitant]
     Indication: DRUG USE FOR UNKNOWN INDICATION
  8. CLARITHROMYCIN [Concomitant]
     Indication: DRUG USE FOR UNKNOWN INDICATION

REACTIONS (1)
  - MENINGITIS ASEPTIC [None]
